FAERS Safety Report 22630303 (Version 1)
Quarter: 2023Q2

REPORT INFORMATION
  Report Type: Spontaneous
  Country: US (occurrence: US)
  Receive Date: 20230622
  Receipt Date: 20230622
  Transmission Date: 20230722
  Serious: Yes (Other)
  Sender: FDA-Public Use
  Company Number: 57860

PATIENT
  Age: 66 Year
  Sex: Female

DRUGS (2)
  1. KORLYM [Suspect]
     Active Substance: MIFEPRISTONE
     Indication: Product used for unknown indication
     Dosage: UNK
     Dates: end: 202303
  2. KORLYM [Suspect]
     Active Substance: MIFEPRISTONE
     Dosage: 600 MG, QD
     Route: 048
     Dates: start: 202303, end: 20230523

REACTIONS (4)
  - Loss of consciousness [Unknown]
  - Blood potassium decreased [Not Recovered/Not Resolved]
  - Blood pressure systolic increased [Unknown]
  - Malaise [Unknown]

NARRATIVE: CASE EVENT DATE: 20230504
